FAERS Safety Report 7213053-2 (Version None)
Quarter: 2011Q1

REPORT INFORMATION
  Report Type: 
  Country: None (occurrence: None)
  Receive Date: 20110106
  Receipt Date: 20101228
  Transmission Date: 20110831
  Serious: Yes (Hospitalization)
  Sender: FDA-Public Use
  Company Number: B0691315A

PATIENT
  Sex: Male
  Weight: 55 kg

DRUGS (4)
  1. HARNAL D [Concomitant]
     Indication: PROSTATE CANCER
     Dosage: .2MG PER DAY
     Route: 048
  2. SPIRIVA [Concomitant]
     Indication: EMPHYSEMA
     Dosage: 18MCG PER DAY
     Route: 055
  3. UNIPHYL [Concomitant]
     Indication: EMPHYSEMA
     Dosage: 400MG PER DAY
     Route: 048
  4. SERETIDE [Suspect]
     Indication: EMPHYSEMA
     Dosage: 500MCG PER DAY
     Route: 055
     Dates: start: 20100129

REACTIONS (1)
  - PNEUMONIA BACTERIAL [None]
